FAERS Safety Report 25770106 (Version 1)
Quarter: 2025Q3

REPORT INFORMATION
  Report Type: Spontaneous
  Country: IN (occurrence: IN)
  Receive Date: 20250907
  Receipt Date: 20250907
  Transmission Date: 20251021
  Serious: Yes (Hospitalization)
  Sender: PRINSTON PHARMACEUTICAL
  Company Number: IN-PRINSTON PHARMACEUTICAL INC.-2025PRN00287

PATIENT
  Age: 48 Year
  Sex: Female

DRUGS (10)
  1. DICYCLOMINE HYDROCHLORIDE [Suspect]
     Active Substance: DICYCLOMINE HYDROCHLORIDE
     Indication: Abdominal pain
  2. DICYCLOMINE HYDROCHLORIDE [Suspect]
     Active Substance: DICYCLOMINE HYDROCHLORIDE
  3. DICYCLOMINE HYDROCHLORIDE [Suspect]
     Active Substance: DICYCLOMINE HYDROCHLORIDE
  4. DICYCLOMINE HYDROCHLORIDE [Suspect]
     Active Substance: DICYCLOMINE HYDROCHLORIDE
  5. DICYCLOMINE HYDROCHLORIDE [Suspect]
     Active Substance: DICYCLOMINE HYDROCHLORIDE
     Dosage: 400 MG, 1X/DAY
  6. ACETAMINOPHEN [Suspect]
     Active Substance: ACETAMINOPHEN
     Indication: Abdominal pain
  7. ACETAMINOPHEN [Suspect]
     Active Substance: ACETAMINOPHEN
     Dosage: UNK, 1X/DAY (15 TO 20 TABLETS DAILY)
  8. ACETAMINOPHEN [Suspect]
     Active Substance: ACETAMINOPHEN
  9. ACETAMINOPHEN [Suspect]
     Active Substance: ACETAMINOPHEN
     Dosage: UNK, 1X/DAY (20?30 TABLETS)
  10. ACETAMINOPHEN [Suspect]
     Active Substance: ACETAMINOPHEN
     Dosage: 6500 MG, 1X/DAY

REACTIONS (3)
  - Drug dependence [Recovered/Resolved]
  - Intentional product misuse [Recovered/Resolved]
  - Withdrawal syndrome [Recovered/Resolved]
